FAERS Safety Report 8538651-5 (Version None)
Quarter: 2012Q3

REPORT INFORMATION
  Report Type: 
  Country: None (occurrence: None)
  Receive Date: 20120713
  Receipt Date: 20120628
  Transmission Date: 20120928
  Serious: Yes (Congenital Anomaly)
  Sender: FDA-Public Use
  Company Number: 2012000163

PATIENT
  Sex: Male

DRUGS (1)
  1. ACEON [Suspect]
     Indication: MATERNAL EXPOSURE DURING PREGNANCY
     Dosage: 5 MG, QD, TRANSPLACENTAL
     Route: 064
     Dates: start: 20110101, end: 20110101

REACTIONS (2)
  - ANOMALY OF EXTERNAL EAR CONGENITAL [None]
  - MATERNAL DRUGS AFFECTING FOETUS [None]
